FAERS Safety Report 26144273 (Version 1)
Quarter: 2025Q4

REPORT INFORMATION
  Report Type: Spontaneous
  Country: US (occurrence: US)
  Receive Date: 20251211
  Receipt Date: 20251211
  Transmission Date: 20260118
  Serious: No
  Sender: DR REDDYS
  Company Number: US-DRL-USA-USA/2025/11/017875

PATIENT
  Sex: Female

DRUGS (3)
  1. ATOMOXETINE [Suspect]
     Active Substance: ATOMOXETINE
     Indication: Attention deficit hyperactivity disorder
     Route: 065
  2. CLONIDINE [Suspect]
     Active Substance: CLONIDINE
     Indication: Attention deficit hyperactivity disorder
     Route: 065
  3. BUPROPION [Concomitant]
     Active Substance: BUPROPION
     Indication: Attention deficit hyperactivity disorder

REACTIONS (3)
  - Drug ineffective [Unknown]
  - Adverse drug reaction [Unknown]
  - Product use in unapproved indication [Unknown]
